FAERS Safety Report 9839900 (Version 1)
Quarter: 2014Q1

REPORT INFORMATION
  Report Type: Spontaneous
  Country: BR (occurrence: BR)
  Receive Date: 20140124
  Receipt Date: 20140124
  Transmission Date: 20141002
  Serious: Yes (Life-Threatening, Hospitalization)
  Sender: FDA-Public Use
  Company Number: BR-ASTRAZENECA-2014SE04828

PATIENT
  Age: 17 Year
  Sex: Female

DRUGS (1)
  1. SEROQUEL XRO [Suspect]
     Route: 048
     Dates: start: 20140115, end: 20140115

REACTIONS (3)
  - Overdose [Unknown]
  - Suicide attempt [Unknown]
  - Somnolence [Unknown]
